FAERS Safety Report 8879264 (Version 1)
Quarter: 2012Q4

REPORT INFORMATION
  Report Type: 
  Country: US (occurrence: US)
  Receive Date: 20121101
  Receipt Date: 20121101
  Transmission Date: 20130627
  Serious: Yes (Hospitalization, Other)
  Sender: FDA-Public Use
  Company Number: US-BAYER-2012-112254

PATIENT
  Age: 19 Year
  Sex: Female

DRUGS (2)
  1. YASMIN [Suspect]
     Indication: MENSES IRREGULAR
  2. YASMIN [Suspect]
     Indication: POLYCYSTIC OVARIES

REACTIONS (2)
  - Deep vein thrombosis [None]
  - Pulmonary embolism [Recovering/Resolving]
